FAERS Safety Report 4719289-4 (Version None)
Quarter: 2005Q3

REPORT INFORMATION
  Report Type: 
  Country: None (occurrence: None)
  Receive Date: 20050719
  Receipt Date: 20050708
  Transmission Date: 20060218
  Serious: Yes (Other)
  Sender: FDA-Public Use
  Company Number: HQWYE109511JUL05

PATIENT
  Sex: Male

DRUGS (1)
  1. SOMAC (PANTOPRAZOLE, UNSPEC) [Suspect]

REACTIONS (1)
  - NEPHRITIS [None]
